FAERS Safety Report 5792117 (Version 1)
Quarter: 2020Q3

REPORT INFORMATION
  Report Type: Report from Study
  Country: US (occurrence: US)
  Receive Date: 20050510
  Receipt Date: 20050510
  Transmission Date: 20201105
  Serious: Yes (Death)
  Sender: FDA-Public Use
  Company Number: US-JNJFOC-20050204056

PATIENT
  Age: 77 Year
  Sex: Female
  Weight: 61.8 kg

DRUGS (26)
  1. LASIX [Concomitant]
     Active Substance: FUROSEMIDE
     Route: 049
  2. ISORDIL [Concomitant]
     Active Substance: ISOSORBIDE DINITRATE
     Route: 049
  3. COUMADIN [Concomitant]
     Active Substance: WARFARIN SODIUM
     Indication: ATRIAL FIBRILLATION
     Route: 049
  4. LASIX [Concomitant]
     Active Substance: FUROSEMIDE
     Route: 049
  5. LISINOPRIL. [Concomitant]
     Active Substance: LISINOPRIL
     Route: 049
  6. METOPROLOL. [Concomitant]
     Active Substance: METOPROLOL
     Route: 049
  7. PLAVIX [Concomitant]
     Active Substance: CLOPIDOGREL BISULFATE
     Route: 049
  8. ARANESP [Concomitant]
     Active Substance: DARBEPOETIN ALFA
     Route: 058
  9. POTASSIUM [Concomitant]
     Active Substance: POTASSIUM
     Route: 049
  10. ISORDIL [Concomitant]
     Active Substance: ISOSORBIDE DINITRATE
     Route: 049
  11. STARLIX [Concomitant]
     Active Substance: NATEGLINIDE
     Route: 049
  12. COUMADIN [Concomitant]
     Active Substance: WARFARIN SODIUM
     Route: 049
  13. COUMADIN [Concomitant]
     Active Substance: WARFARIN SODIUM
     Route: 049
  14. COREG [Concomitant]
     Active Substance: CARVEDILOL
     Route: 049
  15. TORSEMIDE. [Concomitant]
     Active Substance: TORSEMIDE
     Route: 049
  16. AMIODARONE [Suspect]
     Active Substance: AMIODARONE
     Route: 049
     Dates: start: 20050113
  17. SPIRONOLACTONE. [Concomitant]
     Active Substance: SPIRONOLACTONE
     Route: 049
  18. ATARAX [Concomitant]
     Active Substance: HYDROXYZINE HYDROCHLORIDE
     Route: 049
  19. PLAVIX [Concomitant]
     Active Substance: CLOPIDOGREL BISULFATE
     Indication: CORONARY ARTERY DISEASE
     Route: 049
  20. SYNTHROID [Concomitant]
     Active Substance: LEVOTHYROXINE SODIUM
  21. NESIRITIDE [Suspect]
     Active Substance: NESIRITIDE
     Route: 042
  22. NESIRITIDE [Suspect]
     Active Substance: NESIRITIDE
     Dosage: 2 UG/KG BOLUS FOLLOWED BY 0.01 UG/KG MIN INFUSION ADMINISTERED TWICE EACH WEEK.
     Route: 042
  23. AMIODARONE [Suspect]
     Active Substance: AMIODARONE
     Indication: ATRIAL FIBRILLATION
     Route: 049
     Dates: start: 20050113
  24. COREG [Concomitant]
     Active Substance: CARVEDILOL
     Route: 049
  25. RANITIDINE. [Concomitant]
     Active Substance: RANITIDINE
  26. RAMIPRIL. [Concomitant]
     Active Substance: RAMIPRIL
     Route: 049

REACTIONS (48)
  - Sinus bradycardia [Recovered/Resolved]
  - Sinus node dysfunction [Recovered/Resolved]
  - Aortic valve stenosis [None]
  - Nephropathy toxic [None]
  - Atrial fibrillation [None]
  - Cardiac failure congestive [None]
  - Ventricular dysfunction [None]
  - Diastolic dysfunction [None]
  - Aortic valve incompetence [None]
  - Cardiomegaly [None]
  - Pulmonary oedema [None]
  - Dilatation atrial [None]
  - Purulence [None]
  - Blood pressure immeasurable [None]
  - Ischaemic cardiomyopathy [Fatal]
  - Blood pressure systolic increased [None]
  - Jugular vein distension [None]
  - Electrocardiogram QT prolonged [None]
  - Urinary tract infection [None]
  - Weight increased [None]
  - Blood pressure diastolic decreased [None]
  - Ascites [None]
  - Dyspnoea [None]
  - Renal artery stenosis [Recovered/Resolved]
  - Blood potassium increased [None]
  - Electrocardiogram T wave abnormal [None]
  - Pulmonary valve incompetence [None]
  - Dizziness [None]
  - Pulseless electrical activity [None]
  - Drug ineffective [None]
  - Fatigue [None]
  - Atrioventricular block first degree [None]
  - Dilatation ventricular [None]
  - Tricuspid valve incompetence [None]
  - Iron deficiency anaemia [None]
  - Cardiac failure [Not Recovered/Not Resolved]
  - Acute kidney injury [Recovered/Resolved]
  - Anaemia [Recovered/Resolved]
  - Anal abscess [Recovered/Resolved with Sequelae]
  - Oedema peripheral [None]
  - Rales [None]
  - PCO2 decreased [None]
  - Blood sodium decreased [None]
  - Bundle branch block [None]
  - Renal atrophy [None]
  - Mitral valve incompetence [None]
  - Vasodilatation [None]
  - Musculoskeletal pain [None]

NARRATIVE: CASE EVENT DATE: 20050215
